FAERS Safety Report 6046718-9 (Version None)
Quarter: 2009Q1

REPORT INFORMATION
  Report Type: 
  Country: None (occurrence: None)
  Receive Date: 20090122
  Receipt Date: 20090114
  Transmission Date: 20090719
  Serious: Yes (Hospitalization)
  Sender: FDA-Public Use
  Company Number: US-ASTRAZENECA-2009UW01130

PATIENT
  Age: 90 Year
  Sex: Female

DRUGS (9)
  1. NEXIUM [Suspect]
     Indication: DYSPEPSIA
     Dosage: 40 MG
     Route: 048
  2. LOPRESSOR [Concomitant]
  3. EFFEXOR XR [Concomitant]
  4. HYDRALAZINE HCL [Concomitant]
  5. XANAX [Concomitant]
  6. DIGOXIN [Concomitant]
  7. ASPIRIN [Concomitant]
  8. REMERON [Concomitant]
  9. LIPITOR [Concomitant]

REACTIONS (2)
  - ATRIAL FIBRILLATION [None]
  - CARDIAC FAILURE CONGESTIVE [None]
